FAERS Safety Report 18864733 (Version 1)
Quarter: 2021Q1

REPORT INFORMATION
  Report Type: Spontaneous
  Country: US (occurrence: US)
  Receive Date: 20210208
  Receipt Date: 20210208
  Transmission Date: 20210420
  Serious: Yes (Death, Hospitalization)
  Sender: FDA-Public Use
  Company Number: None

PATIENT
  Age: 80 Year
  Sex: Female
  Weight: 31.5 kg

DRUGS (1)
  1. PALIPERIDONE EXTENDED RELEASE TABLETS [Suspect]
     Active Substance: PALIPERIDONE
     Dates: start: 20190803, end: 20190913

REACTIONS (5)
  - Irritability [None]
  - Immobile [None]
  - Cerebrovascular accident [None]
  - Decubitus ulcer [None]
  - Product use in unapproved indication [None]

NARRATIVE: CASE EVENT DATE: 20190913
